FAERS Safety Report 6719494-1 (Version None)
Quarter: 2010Q2

REPORT INFORMATION
  Report Type: 
  Country: None (occurrence: None)
  Receive Date: 20100507
  Receipt Date: 20100419
  Transmission Date: 20101027
  Serious: Yes (Hospitalization)
  Sender: FDA-Public Use
  Company Number: FKO201000141

PATIENT
  Age: 39 Year
  Sex: Male

DRUGS (4)
  1. BLEOMYCIN (MANUFACTURER UNKNOWN) (BLEOMYCIN) (BLEOMYCIN) [Suspect]
     Indication: HODGKIN'S DISEASE
     Dosage: (15 MG)
  2. VINBLASTIN (VINBLASTINE SULFATE) (VINBLASTINE SULFATE) [Concomitant]
  3. ADRINAMYCIN (DOXORUBICIN) (DOXORUBICIN) [Concomitant]
  4. DACARBAZINE [Concomitant]

REACTIONS (15)
  - ABNORMAL BEHAVIOUR [None]
  - APATHY [None]
  - CEREBRAL ATROPHY [None]
  - CEREBRAL ISCHAEMIA [None]
  - COGNITIVE DISORDER [None]
  - DEMENTIA [None]
  - DEPRESSION [None]
  - FATIGUE [None]
  - HYPERPHAGIA [None]
  - HYPERSOMNIA [None]
  - POOR PERSONAL HYGIENE [None]
  - PSYCHOSEXUAL DISORDER [None]
  - PSYCHOTIC DISORDER [None]
  - SEXUALLY INAPPROPRIATE BEHAVIOUR [None]
  - TREATMENT FAILURE [None]
